FAERS Safety Report 13688747 (Version 1)
Quarter: 2017Q2

REPORT INFORMATION
  Report Type: Spontaneous
  Country: US (occurrence: US)
  Receive Date: 20170623
  Receipt Date: 20170623
  Transmission Date: 20170830
  Serious: No
  Sender: FDA-Public Use
  Company Number: None

PATIENT
  Age: 67 Year
  Sex: Male
  Weight: 81 kg

DRUGS (11)
  1. STOOL SOFTENER (DOCUSATE) [Concomitant]
     Active Substance: DOCUSATE
  2. MAGNESIUM [Concomitant]
     Active Substance: MAGNESIUM
  3. FISH OIL [Concomitant]
     Active Substance: FISH OIL
  4. BABY ASPIRIN [Concomitant]
     Active Substance: ASPIRIN
  5. VITAMIN E [Concomitant]
     Active Substance: .ALPHA.-TOCOPHEROL
  6. TRIPLE OMEGA 3-6-9 [Concomitant]
  7. METHOTREXATE. [Suspect]
     Active Substance: METHOTREXATE
     Indication: RHEUMATOID ARTHRITIS
     Dosage: QUANTITY:1 INJECTION(S);OTHER FREQUENCY:EVERY 7 DAYS;?
     Route: 058
     Dates: start: 20161031, end: 20161114
  8. CALCIUM [Concomitant]
     Active Substance: CALCIUM
  9. VITAMIN B12 [Concomitant]
     Active Substance: CYANOCOBALAMIN
  10. VITAMIN D3 [Concomitant]
     Active Substance: CHOLECALCIFEROL
  11. ENZYME Q10 [Concomitant]

REACTIONS (9)
  - Insomnia [None]
  - Vision blurred [None]
  - Confusional state [None]
  - Restlessness [None]
  - Cough [None]
  - Dysphonia [None]
  - Amnesia [None]
  - Social avoidant behaviour [None]
  - Heart rate increased [None]

NARRATIVE: CASE EVENT DATE: 20161107
